FAERS Safety Report 12683605 (Version 1)
Quarter: 2016Q3

REPORT INFORMATION
  Report Type: Spontaneous
  Country: US (occurrence: None)
  Receive Date: 20160824
  Receipt Date: 20160824
  Transmission Date: 20161109
  Serious: Yes (Hospitalization)
  Sender: FDA-Public Use
  Company Number: None

PATIENT
  Age: 61 Year
  Sex: Female
  Weight: 57.3 kg

DRUGS (6)
  1. INSULIN ASPART [Concomitant]
     Active Substance: INSULIN ASPART
  2. PANTOPRAZOLE [Concomitant]
     Active Substance: PANTOPRAZOLE SODIUM
  3. AMPICILLIN/SULBACTAM, 3 GRAM [Suspect]
     Active Substance: AMPICILLIN SODIUM\SULBACTAM SODIUM
     Indication: OSTEOMYELITIS
     Route: 042
  4. MEGESTROL [Concomitant]
     Active Substance: MEGESTROL
  5. AMLODIPINE [Concomitant]
     Active Substance: AMLODIPINE BESYLATE
  6. CARVEDILOL. [Concomitant]
     Active Substance: CARVEDILOL

REACTIONS (2)
  - Rash generalised [None]
  - Skin exfoliation [None]

NARRATIVE: CASE EVENT DATE: 20160706
